FAERS Safety Report 9401257 (Version 1)
Quarter: 2013Q3

REPORT INFORMATION
  Report Type: Spontaneous
  Country: US (occurrence: US)
  Receive Date: 20130715
  Receipt Date: 20130715
  Transmission Date: 20140515
  Serious: Yes (Other)
  Sender: FDA-Public Use
  Company Number: US-MYLANLABS-2013S1014912

PATIENT
  Age: 28 Year
  Sex: Female
  Weight: 98.43 kg

DRUGS (9)
  1. HYDROXYCHLOROQUINE SULFATE TABLETS, USP [Suspect]
     Indication: SYSTEMIC LUPUS ERYTHEMATOSUS
     Route: 048
     Dates: start: 20130613, end: 20130615
  2. ORTHO CYCLEN [Suspect]
     Route: 048
     Dates: start: 20130513, end: 20130615
  3. TOVIAZ [Concomitant]
     Route: 048
  4. SUDAFED [Concomitant]
     Route: 048
  5. GABAPENTIN [Concomitant]
     Route: 048
  6. PREDNISONE [Concomitant]
     Route: 048
  7. SEROQUEL [Concomitant]
     Route: 048
  8. CYMBALTA [Concomitant]
     Route: 048
  9. DIAZEPAM [Concomitant]
     Route: 067

REACTIONS (6)
  - Dyspnoea [Recovered/Resolved]
  - Vision blurred [Not Recovered/Not Resolved]
  - Vomiting [Recovered/Resolved]
  - Diarrhoea [Not Recovered/Not Resolved]
  - Rash generalised [Not Recovered/Not Resolved]
  - Hand-foot-and-mouth disease [Not Recovered/Not Resolved]
